FAERS Safety Report 19087863 (Version 1)
Quarter: 2021Q2

REPORT INFORMATION
  Report Type: Spontaneous
  Country: CA (occurrence: CA)
  Receive Date: 20210402
  Receipt Date: 20210402
  Transmission Date: 20210717
  Serious: Yes (Other)
  Sender: FDA-Public Use
  Company Number: CA-IPSEN BIOPHARMACEUTICALS, INC.-2021-08539

PATIENT

DRUGS (4)
  1. SOMATULINE AUTOGEL [Suspect]
     Active Substance: LANREOTIDE ACETATE
     Indication: ACROMEGALY
  2. SOMATULINE AUTOGEL [Suspect]
     Active Substance: LANREOTIDE ACETATE
     Indication: SECRETORY ADENOMA OF PITUITARY
     Route: 065
  3. CABERGOLINE. [Suspect]
     Active Substance: CABERGOLINE
     Indication: ACROMEGALY
  4. CABERGOLINE. [Suspect]
     Active Substance: CABERGOLINE
     Indication: SECRETORY ADENOMA OF PITUITARY
     Route: 065

REACTIONS (1)
  - Insulin-like growth factor increased [Unknown]
